FAERS Safety Report 4911325-5 (Version None)
Quarter: 2006Q1

REPORT INFORMATION
  Report Type: 
  Country: None (occurrence: None)
  Receive Date: 20060113
  Receipt Date: 20051109
  Transmission Date: 20060701
  Serious: No
  Sender: FDA-Public Use
  Company Number: 2005SP003917

PATIENT
  Sex: Female

DRUGS (6)
  1. LUNESTA [Suspect]
     Dosage: HS; ORAL
     Route: 048
     Dates: start: 20051101, end: 20051101
  2. LOPRESSOR [Concomitant]
  3. ZOLOFT [Concomitant]
  4. BENICAR [Concomitant]
  5. ATORVASTATIN CALCIUM [Concomitant]
  6. AMBIEN [Concomitant]

REACTIONS (3)
  - DRY MOUTH [None]
  - DYSGEUSIA [None]
  - SWELLING [None]
